FAERS Safety Report 7085895-8 (Version None)
Quarter: 2010Q4

REPORT INFORMATION
  Report Type: 
  Country: None (occurrence: None)
  Receive Date: 20101105
  Receipt Date: 20101103
  Transmission Date: 20110411
  Serious: Yes (Death, Other)
  Sender: FDA-Public Use
  Company Number: US-B.I. PHARMACEUTICALS,INC./RIDGEFIELD-2010-BP-06957BP

PATIENT
  Sex: Female

DRUGS (13)
  1. SPIRIVA [Suspect]
     Indication: CHRONIC OBSTRUCTIVE PULMONARY DISEASE
     Dosage: 18 MCG
     Route: 055
  2. ADVAIR DISKUS 100/50 [Concomitant]
     Indication: CHRONIC OBSTRUCTIVE PULMONARY DISEASE
  3. PREDNISONE [Concomitant]
     Indication: ARTHRITIS
  4. XANAX [Concomitant]
     Indication: ANXIETY
  5. MELOXICAM [Concomitant]
     Indication: ARTHRITIS
  6. ZOLOFT [Concomitant]
     Indication: DELIRIUM
  7. HALCION [Concomitant]
     Indication: SLEEP DISORDER
  8. LIDODERM [Concomitant]
     Indication: BACK PAIN
  9. LIDODERM [Concomitant]
     Indication: PAIN IN JAW
  10. LIDODERM [Concomitant]
     Indication: NECK PAIN
  11. FENTANYL [Concomitant]
     Indication: BACK PAIN
  12. FENTANYL [Concomitant]
     Indication: PAIN IN JAW
  13. FENTANYL [Concomitant]
     Indication: NECK PAIN

REACTIONS (7)
  - BONE NEOPLASM MALIGNANT [None]
  - HEPATIC NEOPLASM MALIGNANT [None]
  - LUNG NEOPLASM MALIGNANT [None]
  - LYMPHOMA [None]
  - OESOPHAGEAL CARCINOMA [None]
  - PELVIC NEOPLASM [None]
  - THYROID CANCER [None]
